FAERS Safety Report 12767156 (Version 1)
Quarter: 2016Q3

REPORT INFORMATION
  Report Type: Spontaneous
  Country: AU (occurrence: AU)
  Receive Date: 20160921
  Receipt Date: 20160921
  Transmission Date: 20161109
  Serious: Yes (Other)
  Sender: FDA-Public Use
  Company Number: AU-009507513-1609AUS009079

PATIENT

DRUGS (1)
  1. SUGAMMADEX SODIUM [Suspect]
     Active Substance: SUGAMMADEX SODIUM
     Dosage: UNK
     Dates: start: 201608

REACTIONS (5)
  - Apnoea [Unknown]
  - Drug effect incomplete [Unknown]
  - Vocal cord paralysis [Unknown]
  - Somnolence [Unknown]
  - Tidal volume [Unknown]

NARRATIVE: CASE EVENT DATE: 201608
